FAERS Safety Report 15084225 (Version 1)
Quarter: 2018Q2

REPORT INFORMATION
  Report Type: Spontaneous
  Country: CA (occurrence: CA)
  Receive Date: 20180628
  Receipt Date: 20180628
  Transmission Date: 20180711
  Serious: Yes (Death)
  Sender: FDA-Public Use
  Company Number: CA-TEVA-2018-CA-916494

PATIENT
  Age: 40 Year
  Sex: Male
  Weight: 102 kg

DRUGS (10)
  1. CITALOPRAM [Concomitant]
     Active Substance: CITALOPRAM HYDROBROMIDE
  2. TRUVADA [Concomitant]
     Active Substance: EMTRICITABINE\TENOFOVIR DISOPROXIL FUMARATE
  3. CLONIDINE. [Concomitant]
     Active Substance: CLONIDINE
  4. METHADONE [Concomitant]
     Active Substance: METHADONE HYDROCHLORIDE
  5. CLONAZEPAM. [Concomitant]
     Active Substance: CLONAZEPAM
  6. DOCUSATE [Concomitant]
     Active Substance: DOCUSATE
  7. NORVIR [Concomitant]
     Active Substance: RITONAVIR
  8. CIALIS [Concomitant]
     Active Substance: TADALAFIL
  9. OXYCODONE [Suspect]
     Active Substance: OXYCODONE
     Route: 065
  10. VIAGRA [Concomitant]
     Active Substance: SILDENAFIL CITRATE

REACTIONS (4)
  - Opiates positive [Fatal]
  - Amphetamines positive [Fatal]
  - Overdose [Fatal]
  - Postmortem blood drug level increased [Fatal]
